FAERS Safety Report 24598704 (Version 4)
Quarter: 2025Q4

REPORT INFORMATION
  Report Type: Spontaneous
  Country: US (occurrence: US)
  Receive Date: 20241110
  Receipt Date: 20251202
  Transmission Date: 20260118
  Serious: No
  Sender: SANOFI AVENTIS
  Company Number: US-SA-2024SA308470

PATIENT
  Age: 5 Year
  Sex: Male

DRUGS (1)
  1. DUPIXENT [Suspect]
     Active Substance: DUPILUMAB
     Indication: Eosinophilic oesophagitis
     Dosage: 200 MG, Q4W
     Route: 058
     Dates: start: 20240905

REACTIONS (6)
  - Molluscum contagiosum [Recovered/Resolved]
  - Anxiety [Not Recovered/Not Resolved]
  - Dysphagia [Recovered/Resolved]
  - Injection site swelling [Recovered/Resolved]
  - Injection site pain [Not Recovered/Not Resolved]
  - Inappropriate schedule of product administration [Unknown]

NARRATIVE: CASE EVENT DATE: 20240101
